FAERS Safety Report 14764888 (Version 1)
Quarter: 2018Q2

REPORT INFORMATION
  Report Type: Spontaneous
  Country: SI (occurrence: SI)
  Receive Date: 20180416
  Receipt Date: 20180416
  Transmission Date: 20180711
  Serious: Yes (Life-Threatening, Hospitalization)
  Sender: FDA-Public Use
  Company Number: SI-TEVA-2018-SI-881389

PATIENT
  Age: 52 Year
  Sex: Male

DRUGS (6)
  1. SANVAL 5 MG [Concomitant]
  2. BOPACATIN 10 MG/ML [Suspect]
     Active Substance: CARBOPLATIN
     Indication: HYPOPHARYNGEAL CANCER
     Dosage: 10 MG/ML CONCENTRATE FOR SOLUTION FOR INFUSION
     Dates: start: 20171124, end: 20171128
  3. AMPRIL 10 MG [Concomitant]
  4. REGLAN [Concomitant]
     Active Substance: METOCLOPRAMIDE HYDROCHLORIDE
  5. NALGESIN FORTE [Concomitant]
  6. SELDIAR [Concomitant]

REACTIONS (6)
  - Resuscitation [Recovering/Resolving]
  - Pruritus [Recovering/Resolving]
  - Muscle spasms [Recovering/Resolving]
  - Urinary incontinence [Recovering/Resolving]
  - Loss of consciousness [Recovering/Resolving]
  - Cardiac arrest [Recovering/Resolving]

NARRATIVE: CASE EVENT DATE: 20171124
